FAERS Safety Report 5732543-2 (Version None)
Quarter: 2008Q2

REPORT INFORMATION
  Report Type: 
  Country: None (occurrence: None)
  Receive Date: 20080507
  Receipt Date: 20071126
  Transmission Date: 20081010
  Serious: Yes (Other)
  Sender: FDA-Public Use
  Company Number: E2090-00349-SPO-GB

PATIENT
  Sex: Female

DRUGS (1)
  1. ZONEGRAN [Suspect]
     Indication: EPILEPSY
     Dosage: 50 MG, 2 IN 1 D, ORAL
     Route: 048
     Dates: start: 20071101, end: 20070101

REACTIONS (2)
  - DIARRHOEA [None]
  - NEUROLEPTIC MALIGNANT SYNDROME [None]
